FAERS Safety Report 12529499 (Version 1)
Quarter: 2016Q3

REPORT INFORMATION
  Report Type: Spontaneous
  Country: JP (occurrence: JP)
  Receive Date: 20160706
  Receipt Date: 20160706
  Transmission Date: 20161109
  Serious: Yes (Other)
  Sender: FDA-Public Use
  Company Number: JP-CIPLA LTD.-2016JP08144

PATIENT

DRUGS (8)
  1. CARBOPLATIN. [Suspect]
     Active Substance: CARBOPLATIN
     Indication: SQUAMOUS CELL CARCINOMA OF HEAD AND NECK
     Dosage: AUC 4.5
     Route: 065
  2. CISPLATIN. [Suspect]
     Active Substance: CISPLATIN
     Dosage: 60 MG/M2, UNK
     Route: 065
  3. DOCETAXEL. [Suspect]
     Active Substance: DOCETAXEL
     Dosage: 60 MG/M2, UNK
     Route: 065
  4. RABEPRAZOLE [Concomitant]
     Active Substance: RABEPRAZOLE
     Indication: PREMEDICATION
     Dosage: 10 MG, UNK
     Route: 065
  5. DEXAMETHASONE. [Concomitant]
     Active Substance: DEXAMETHASONE
     Indication: PREMEDICATION
     Dosage: 8 MG, UNK
     Route: 065
  6. CISPLATIN. [Suspect]
     Active Substance: CISPLATIN
     Indication: SQUAMOUS CELL CARCINOMA OF HEAD AND NECK
     Dosage: 20 MG/M2, ONCE WEEKLY FOR SIX CYCLES
     Route: 065
  7. DOCETAXEL. [Suspect]
     Active Substance: DOCETAXEL
     Indication: SQUAMOUS CELL CARCINOMA OF HEAD AND NECK
     Dosage: 10 MG/M2, ONCE WEEKLY FOR SIX CYCLES
     Route: 065
  8. FLUOROURACIL. [Suspect]
     Active Substance: FLUOROURACIL
     Indication: SQUAMOUS CELL CARCINOMA OF HEAD AND NECK
     Dosage: 600 MG/M2/DAY
     Route: 065

REACTIONS (1)
  - Disease recurrence [Unknown]
